FAERS Safety Report 5894455-3 (Version None)
Quarter: 2008Q3

REPORT INFORMATION
  Report Type: 
  Country: None (occurrence: None)
  Receive Date: 20080923
  Receipt Date: 20080923
  Transmission Date: 20090109
  Serious: Yes (Life-Threatening, Hospitalization)
  Sender: FDA-Public Use
  Company Number: None

PATIENT
  Age: 61 Year
  Sex: Male
  Weight: 63.3 kg

DRUGS (4)
  1. LORAZEPAM [Suspect]
     Indication: DELIRIUM TREMENS
     Dosage: 2 MG PRN IV
     Route: 042
     Dates: start: 20080527, end: 20080601
  2. LORAZEPAM [Suspect]
     Indication: HEPATIC ENCEPHALOPATHY
     Dosage: 2 MG PRN IV
     Route: 042
     Dates: start: 20080527, end: 20080601
  3. CHLORDIAZEPOXIDE [Suspect]
     Indication: DELIRIUM TREMENS
     Dosage: 25 MG QID PO
     Route: 048
     Dates: start: 20080521, end: 20080527
  4. CHLORDIAZEPOXIDE [Suspect]
     Indication: HEPATIC ENCEPHALOPATHY
     Dosage: 25 MG QID PO
     Route: 048
     Dates: start: 20080521, end: 20080527

REACTIONS (10)
  - ANOXIA [None]
  - CARDIO-RESPIRATORY ARREST [None]
  - COMA [None]
  - CONFUSIONAL STATE [None]
  - ENCEPHALOPATHY [None]
  - LETHARGY [None]
  - RESPIRATORY DEPRESSION [None]
  - SEDATION [None]
  - TACHYCARDIA [None]
  - UNRESPONSIVE TO STIMULI [None]
